FAERS Safety Report 5003151-6 (Version None)
Quarter: 2006Q2

REPORT INFORMATION
  Report Type: 
  Country: None (occurrence: None)
  Receive Date: 20060516
  Receipt Date: 20060502
  Transmission Date: 20061013
  Serious: Yes (Other)
  Sender: FDA-Public Use
  Company Number: CA-NOVOPROD-253077

PATIENT
  Age: 20 Year
  Sex: Male

DRUGS (2)
  1. LEVEMIR [Suspect]
     Indication: DIABETES MELLITUS INSULIN-DEPENDENT
  2. NOVORAPID [Concomitant]

REACTIONS (2)
  - HEADACHE [None]
  - VISUAL DISTURBANCE [None]
